FAERS Safety Report 10302417 (Version 3)
Quarter: 2014Q4

REPORT INFORMATION
  Report Type: Spontaneous
  Country: NO (occurrence: NO)
  Receive Date: 20140714
  Receipt Date: 20141110
  Transmission Date: 20150528
  Serious: Yes (Congenital Anomaly)
  Sender: FDA-Public Use
  Company Number: NO-009507513-1407NOR005000

PATIENT
  Sex: Female
  Weight: 3.46 kg

DRUGS (3)
  1. MAXALT [Suspect]
     Active Substance: RIZATRIPTAN BENZOATE
     Dosage: 3-4 TIMES PER MONTH DURING THREE FIRST MONTHS OF PREGNANCY
     Route: 064
  2. IMIGRAN (SUMATRIPTAN) [Suspect]
     Active Substance: SUMATRIPTAN
     Indication: MIGRAINE
     Dosage: 3-4 TIMES PER MONTH DURING THREE FIRST MONTHS OF PREGNANCY
     Route: 064
  3. MAXALT [Suspect]
     Active Substance: RIZATRIPTAN BENZOATE
     Indication: MIGRAINE
     Dosage: 3-4 TIMES PER MONTH DURING THREE FIRST MONTHS OF PREGNANCY
     Route: 064

REACTIONS (4)
  - Congenital pulmonary valve atresia [Not Recovered/Not Resolved]
  - Heart disease congenital [Not Recovered/Not Resolved]
  - Ventricular septal defect [Not Recovered/Not Resolved]
  - Foetal exposure during pregnancy [Not Recovered/Not Resolved]
